FAERS Safety Report 21203995 (Version 2)
Quarter: 2022Q3

REPORT INFORMATION
  Report Type: Report from Study
  Country: CA (occurrence: CA)
  Receive Date: 20220811
  Receipt Date: 20220913
  Transmission Date: 20221027
  Serious: No
  Sender: FDA-Public Use
  Company Number: CA-JNJFOC-20220754114

PATIENT
  Age: 62 Year
  Sex: Male
  Weight: 55 kg

DRUGS (1)
  1. SIMPONI [Suspect]
     Active Substance: GOLIMUMAB
     Indication: Rheumatoid arthritis
     Dosage: STRENGTH: 50.00 MG / 0.50 ML
     Route: 058
     Dates: start: 20220725

REACTIONS (2)
  - Device issue [Unknown]
  - Underdose [Unknown]

NARRATIVE: CASE EVENT DATE: 20220725
